FAERS Safety Report 20032446 (Version 1)
Quarter: 2021Q4

REPORT INFORMATION
  Report Type: Spontaneous
  Country: US (occurrence: US)
  Receive Date: 20211103
  Receipt Date: 20211103
  Transmission Date: 20220303
  Serious: Yes (Other)
  Sender: FDA-Public Use
  Company Number: US-ALLERGAN-2122956US

PATIENT
  Age: 36 Year
  Sex: Male
  Weight: 102.04 kg

DRUGS (3)
  1. VRAYLAR [Suspect]
     Active Substance: CARIPRAZINE
     Indication: Bipolar disorder
     Dosage: 3 MG, QOD
     Dates: start: 2021
  2. VRAYLAR [Suspect]
     Active Substance: CARIPRAZINE
     Dosage: 3 MG, QD
     Route: 048
     Dates: start: 20201120, end: 20210610
  3. BUSPAR [Concomitant]
     Active Substance: BUSPIRONE HYDROCHLORIDE
     Indication: Anxiety
     Dosage: 30 MG, BID
     Route: 048

REACTIONS (3)
  - Seizure [Recovered/Resolved with Sequelae]
  - Off label use [Unknown]
  - Depression [Unknown]

NARRATIVE: CASE EVENT DATE: 20210101
